FAERS Safety Report 24669562 (Version 1)
Quarter: 2024Q4

REPORT INFORMATION
  Report Type: Spontaneous
  Country: FR (occurrence: FR)
  Receive Date: 20241127
  Receipt Date: 20241127
  Transmission Date: 20250115
  Serious: Yes (Other)
  Sender: ORGANON
  Company Number: FR-PFM-2018-14644

PATIENT
  Age: 11 Year
  Sex: Female

DRUGS (2)
  1. BETAMETHASONE DIPROPIONATE [Suspect]
     Active Substance: BETAMETHASONE DIPROPIONATE
     Indication: Scab
     Dosage: UNK
  2. CICLOPIROX [Suspect]
     Active Substance: CICLOPIROX
     Indication: Scab
     Dosage: 1 DF, EVERY 2 WEEKS
     Route: 061
     Dates: start: 201807, end: 20181211

REACTIONS (7)
  - Gamma-glutamyltransferase increased [Not Recovered/Not Resolved]
  - Alanine aminotransferase increased [Not Recovered/Not Resolved]
  - Inappropriate schedule of product administration [Unknown]
  - Off label use [Unknown]
  - Incorrect dose administered [Unknown]
  - Product use issue [Unknown]
  - Product use issue [Unknown]
